FAERS Safety Report 20142268 (Version 2)
Quarter: 2022Q1

REPORT INFORMATION
  Report Type: Spontaneous
  Country: JP (occurrence: JP)
  Receive Date: 20211202
  Receipt Date: 20220207
  Transmission Date: 20220424
  Serious: Yes (Hospitalization)
  Sender: FDA-Public Use
  Company Number: JP-BIOCRYST-2021BCR00529

PATIENT
  Age: 85 Year
  Sex: Female

DRUGS (3)
  1. RAPIACTA [Suspect]
     Active Substance: PERAMIVIR
     Indication: Influenza
     Route: 065
  2. XOFLUZA [Suspect]
     Active Substance: BALOXAVIR MARBOXIL
     Indication: Influenza
     Route: 065
  3. ACETAMINOPHEN [Suspect]
     Active Substance: ACETAMINOPHEN
     Indication: Influenza
     Route: 065

REACTIONS (1)
  - Melaena [Unknown]
